FAERS Safety Report 7801159-6 (Version None)
Quarter: 2011Q4

REPORT INFORMATION
  Report Type: 
  Country: None (occurrence: None)
  Receive Date: 20111007
  Receipt Date: 20110929
  Transmission Date: 20120403
  Serious: No
  Sender: FDA-Public Use
  Company Number: US-BIOGENIDEC-2011BI037586

PATIENT
  Age: 35 Year
  Sex: Male

DRUGS (1)
  1. TYSABRI [Suspect]
     Indication: MULTIPLE SCLEROSIS
     Route: 042
     Dates: start: 20110614

REACTIONS (6)
  - FALL [None]
  - MOBILITY DECREASED [None]
  - URINARY TRACT INFECTION [None]
  - GAIT DISTURBANCE [None]
  - URINARY INCONTINENCE [None]
  - STRESS [None]
